FAERS Safety Report 25905572 (Version 1)
Quarter: 2025Q4

REPORT INFORMATION
  Report Type: Spontaneous
  Country: CA (occurrence: CA)
  Receive Date: 20251010
  Receipt Date: 20251010
  Transmission Date: 20260119
  Serious: Yes (Other)
  Sender: ACCORD
  Company Number: None

PATIENT
  Age: 72 Year
  Sex: Female

DRUGS (4)
  1. OXALIPLATIN [Suspect]
     Active Substance: OXALIPLATIN
     Indication: Neoplasm malignant
  2. BENADRYL [Concomitant]
     Active Substance: DIPHENHYDRAMINE HYDROCHLORIDE
  3. FAMOTIDINE [Concomitant]
     Active Substance: FAMOTIDINE
  4. HYDROCORTISONE [Concomitant]
     Active Substance: HYDROCORTISONE
     Dosage: POWDER FOR SOLUTION
     Route: 030

REACTIONS (5)
  - Erythema [Recovering/Resolving]
  - Oropharyngeal pain [Recovering/Resolving]
  - Abdominal pain [Recovering/Resolving]
  - Pruritus [Recovering/Resolving]
  - Chest discomfort [Recovering/Resolving]
